FAERS Safety Report 12195658 (Version 1)
Quarter: 2016Q1

REPORT INFORMATION
  Report Type: Spontaneous
  Country: US (occurrence: US)
  Receive Date: 20160321
  Receipt Date: 20160321
  Transmission Date: 20160526
  Serious: No
  Sender: FDA-Public Use
  Company Number: US-FRESENIUS KABI-FK201601383

PATIENT
  Age: 73 Year
  Sex: Male

DRUGS (1)
  1. CYTARABINE INJECTION [Suspect]
     Active Substance: CYTARABINE
     Indication: ACUTE MYELOID LEUKAEMIA
     Route: 042
     Dates: start: 20160312, end: 20160312

REACTIONS (1)
  - Product measured potency issue [Unknown]

NARRATIVE: CASE EVENT DATE: 20160312
